FAERS Safety Report 7424560 (Version 2)
Quarter: 2012Q4

REPORT INFORMATION
  Report Type: 
  Country: TH (occurrence: TH)
  Receive Date: 20100618
  Receipt Date: 20121112
  Transmission Date: 20130627
  Serious: Yes (Other)
  Sender: FDA-Public Use
  Company Number: TH-JNJFOC-20100605395

PATIENT
  Age: 55 Year
  Sex: Female

DRUGS (2)
  1. RISPERIDONE [Suspect]
     Indication: DEPRESSED MOOD
     Route: 065
  2. RISPERIDONE [Suspect]
     Indication: DEPRESSED MOOD
     Route: 065

REACTIONS (2)
  - Paroxysmal perceptual alteration [Recovered/Resolved]
  - Off label use [Recovered/Resolved]
